FAERS Safety Report 10339473 (Version 1)
Quarter: 2014Q3

REPORT INFORMATION
  Report Type: Spontaneous
  Country: US (occurrence: US)
  Receive Date: 20140724
  Receipt Date: 20140724
  Transmission Date: 20150326
  Serious: No
  Sender: FDA-Public Use
  Company Number: US-ASTRAZENECA-2014SE51032

PATIENT
  Sex: Female
  Weight: 49.9 kg

DRUGS (2)
  1. PULMICORT FLEXHALER [Suspect]
     Active Substance: BUDESONIDE
     Indication: CHRONIC OBSTRUCTIVE PULMONARY DISEASE
     Route: 055
     Dates: start: 201310
  2. SPRIVIA [Concomitant]
     Indication: CHRONIC OBSTRUCTIVE PULMONARY DISEASE
     Dosage: NR NR
     Route: 055

REACTIONS (3)
  - Off label use [Unknown]
  - Drug dose omission [Unknown]
  - Dry mouth [Unknown]

NARRATIVE: CASE EVENT DATE: 201310
